FAERS Safety Report 6961529-5 (Version None)
Quarter: 2010Q3

REPORT INFORMATION
  Report Type: 
  Country: None (occurrence: None)
  Receive Date: 20100901
  Receipt Date: 20100823
  Transmission Date: 20110219
  Serious: Yes (Other)
  Sender: FDA-Public Use
  Company Number: GXKR2010TR09415

PATIENT
  Age: 38 Year
  Sex: Female

DRUGS (3)
  1. OLANZAPINE [Suspect]
     Indication: BIPOLAR DISORDER
     Dosage: 15 MG/DAY
     Route: 065
  2. PAROXETINE (NGX) [Suspect]
     Indication: BIPOLAR DISORDER
     Dosage: 40 MG/DAY
     Route: 065
  3. VALPROIC ACID [Suspect]
     Indication: BIPOLAR DISORDER
     Dosage: 1000 MG/DAY
     Route: 065

REACTIONS (6)
  - BENIGN INTRACRANIAL HYPERTENSION [None]
  - HEADACHE [None]
  - NAUSEA [None]
  - PAPILLOEDEMA [None]
  - VISION BLURRED [None]
  - WEIGHT INCREASED [None]
